FAERS Safety Report 8459477-7 (Version None)
Quarter: 2012Q2

REPORT INFORMATION
  Report Type: 
  Country: None (occurrence: None)
  Receive Date: 20120622
  Receipt Date: 20120618
  Transmission Date: 20120825
  Serious: Yes (Death, Life-Threatening)
  Sender: FDA-Public Use
  Company Number: KR-JNJFOC-20120510998

PATIENT
  Sex: Female

DRUGS (7)
  1. MIDAZOLAM [Concomitant]
     Indication: MECHANICAL VENTILATION
     Route: 042
     Dates: start: 20120426
  2. DORIPENEM MONOHYDRATE [Suspect]
     Indication: PNEUMONIA
     Route: 041
     Dates: start: 20120426, end: 20120504
  3. ALL OTHER THERAPEUTIC PRODUCTS [Concomitant]
     Indication: LUNG DISORDER
     Route: 042
     Dates: start: 20120416
  4. ATRACURIUM BESYLATE [Concomitant]
     Indication: PARALYSIS
     Dosage: 25 MG/2.5 ML
     Route: 042
     Dates: start: 20120426
  5. TEV-TROPIN [Concomitant]
     Indication: BLOOD PRESSURE
     Dosage: 50 MG/5 ML
     Route: 042
     Dates: start: 20120426
  6. LASIX [Concomitant]
     Indication: POLYURIA
     Dosage: 20 MG/2 ML
     Route: 042
     Dates: start: 20120426
  7. NOREPINEPHRINE BITARTRATE [Concomitant]
     Indication: BLOOD PRESSURE
     Dosage: 40 MG/20 ML
     Route: 042
     Dates: start: 20120426

REACTIONS (4)
  - SEPSIS [None]
  - BLOOD CREATININE INCREASED [None]
  - MULTI-ORGAN FAILURE [None]
  - DRUG INEFFECTIVE [None]
